FAERS Safety Report 5880074-1 (Version None)
Quarter: 2008Q3

REPORT INFORMATION
  Report Type: 
  Country: None (occurrence: None)
  Receive Date: 20080912
  Receipt Date: 20080901
  Transmission Date: 20090109
  Serious: Yes (Death, Other)
  Sender: FDA-Public Use
  Company Number: JP-PFIZER INC-2008071077

PATIENT
  Age: 45 Year
  Sex: Female

DRUGS (2)
  1. PREDNISOLONE [Suspect]
     Route: 048
  2. SOLU-MEDROL [Suspect]
     Dosage: DAILY DOSE:1000MG
     Route: 042

REACTIONS (5)
  - CYTOMEGALOVIRUS GASTROINTESTINAL INFECTION [None]
  - GASTRITIS EROSIVE [None]
  - ILEAL ULCER PERFORATION [None]
  - MULTI-ORGAN FAILURE [None]
  - PERITONITIS [None]
